FAERS Safety Report 20847120 (Version 1)
Quarter: 2022Q2

REPORT INFORMATION
  Report Type: Spontaneous
  Country: US (occurrence: US)
  Receive Date: 20220519
  Receipt Date: 20220519
  Transmission Date: 20220720
  Serious: No
  Sender: FDA-Public Use
  Company Number: US-Accord-226008

PATIENT
  Age: 60 Year
  Sex: Male

DRUGS (9)
  1. QUETIAPINE FUMARATE [Suspect]
     Active Substance: QUETIAPINE FUMARATE
     Indication: Post-traumatic stress disorder
     Dosage: QD, STRENGTH: 25MG
     Route: 048
  2. CELEBREX [Concomitant]
     Active Substance: CELECOXIB
  3. CETIRIZINE [Concomitant]
     Active Substance: CETIRIZINE HYDROCHLORIDE
  4. NEXIUM [Concomitant]
     Active Substance: ESOMEPRAZOLE MAGNESIUM
  5. FORTESTA [Concomitant]
     Active Substance: TESTOSTERONE
  6. HYDROCHLOROTHIAZIDE [Concomitant]
     Active Substance: HYDROCHLOROTHIAZIDE
  7. LOSARTAN [Concomitant]
     Active Substance: LOSARTAN
  8. PRAVASTATIN [Concomitant]
     Active Substance: PRAVASTATIN
  9. PAROXETINE [Concomitant]
     Active Substance: PAROXETINE

REACTIONS (2)
  - Rash [Unknown]
  - Lethargy [Unknown]

NARRATIVE: CASE EVENT DATE: 20210509
